FAERS Safety Report 10868733 (Version 1)
Quarter: 2015Q1

REPORT INFORMATION
  Report Type: Spontaneous
  Country: SE (occurrence: SE)
  Receive Date: 20150225
  Receipt Date: 20150225
  Transmission Date: 20150721
  Serious: Yes (Hospitalization)
  Sender: FDA-Public Use
  Company Number: SE-JNJFOC-20150213719

PATIENT
  Age: 89 Year
  Sex: Male

DRUGS (12)
  1. FUCITHALMIC [Concomitant]
     Active Substance: FUSIDIC ACID
     Route: 065
  2. COLGATE DURAPHAT [Concomitant]
     Active Substance: SODIUM FLUORIDE
     Route: 065
  3. CANODERM [Concomitant]
     Route: 065
  4. FURIX [Concomitant]
     Active Substance: FUROSEMIDE
     Route: 048
  5. XARELTO [Suspect]
     Active Substance: RIVAROXABAN
     Indication: EMBOLISM VENOUS
     Route: 048
     Dates: start: 20150123, end: 20150205
  6. MOVICOL [Concomitant]
     Active Substance: POLYETHYLENE GLYCOL 3350\POTASSIUM CHLORIDE\SODIUM BICARBONATE\SODIUM CHLORIDE
     Route: 065
  7. SELOKENZOC [Concomitant]
     Active Substance: METOPROLOL SUCCINATE
     Route: 065
  8. PROCREN [Concomitant]
     Active Substance: LEUPROLIDE ACETATE
     Route: 065
  9. DUROFERON [Concomitant]
     Active Substance: FERROUS SULFATE\FERROUS SULFATE, DRIED
     Route: 065
  10. BETOLVIDON [Concomitant]
     Route: 048
  11. ARTELAC [Concomitant]
     Active Substance: HYPROMELLOSES
     Route: 065
  12. XARELTO [Suspect]
     Active Substance: RIVAROXABAN
     Indication: DEEP VEIN THROMBOSIS
     Route: 048
     Dates: start: 20150123, end: 20150205

REACTIONS (1)
  - Anaemia [Unknown]

NARRATIVE: CASE EVENT DATE: 20150205
